FAERS Safety Report 7523761-1 (Version None)
Quarter: 2011Q2

REPORT INFORMATION
  Report Type: 
  Country: None (occurrence: None)
  Receive Date: 20110603
  Receipt Date: 20110519
  Transmission Date: 20111010
  Serious: Yes (Other)
  Sender: FDA-Public Use
  Company Number: GB-WATSON-2011-07556

PATIENT
  Sex: Female

DRUGS (3)
  1. ASPIRIN [Suspect]
  2. PREDNISOLONE [Suspect]
     Indication: DRUG EXPOSURE DURING PREGNANCY
     Dosage: UNK
     Route: 064
  3. HEPARIN SODIUM [Suspect]
     Indication: DRUG EXPOSURE DURING PREGNANCY
     Dosage: UNK
     Route: 064

REACTIONS (5)
  - SMALL FOR DATES BABY [None]
  - ABORTION SPONTANEOUS [None]
  - PREMATURE LABOUR [None]
  - PRE-ECLAMPSIA [None]
  - ECTOPIC PREGNANCY [None]
